FAERS Safety Report 10891921 (Version 4)
Quarter: 2015Q2

REPORT INFORMATION
  Report Type: Report from Study
  Country: US (occurrence: US)
  Receive Date: 20150306
  Receipt Date: 20150403
  Transmission Date: 20150821
  Serious: Yes (Hospitalization, Other)
  Sender: FDA-Public Use
  Company Number: US-ACTELION-A-US2015-113788

PATIENT
  Age: 69 Year
  Sex: Female

DRUGS (4)
  1. TYVASO [Concomitant]
     Active Substance: TREPROSTINIL
  2. SILDENAFIL. [Concomitant]
     Active Substance: SILDENAFIL
  3. TRACLEER [Suspect]
     Active Substance: BOSENTAN\BOSENTAN MONOHYDRATE
     Indication: PULMONARY ARTERIAL HYPERTENSION
     Dosage: UNK
     Route: 048
  4. COUMADIN [Concomitant]
     Active Substance: WARFARIN SODIUM

REACTIONS (14)
  - Implantable defibrillator insertion [Unknown]
  - Pain in jaw [Unknown]
  - Urinary tract infection [Unknown]
  - Pain in extremity [Unknown]
  - Dry throat [Unknown]
  - Nausea [Unknown]
  - Headache [Unknown]
  - Cough [Unknown]
  - Malaise [Unknown]
  - Oropharyngeal pain [Unknown]
  - Upper respiratory tract infection [Unknown]
  - Coronary arterial stent insertion [Unknown]
  - Bacterial infection [Unknown]
  - Pyrexia [Unknown]

NARRATIVE: CASE EVENT DATE: 2011
